FAERS Safety Report 12314920 (Version 1)
Quarter: 2016Q2

REPORT INFORMATION
  Report Type: Spontaneous
  Country: US (occurrence: US)
  Receive Date: 20160428
  Receipt Date: 20160428
  Transmission Date: 20160815
  Serious: No
  Sender: FDA-Public Use
  Company Number: US-ENDO PHARMACEUTICALS INC.-2016-000192

PATIENT
  Sex: Female

DRUGS (2)
  1. PROPRANOLOL HCL TABLETS 60MG (PROPRANOLOL HYDROCHLORIDE TABLETS 60MG) (PROPRANOLOL HYDROCHLORIDE) (60 MILLIGRAM, TABLETS) (PROPRANOLOL HYDROCHLORIDE) [Suspect]
     Active Substance: PROPRANOLOL HYDROCHLORIDE
     Indication: ARRHYTHMIA
     Route: 048
     Dates: start: 2015
  2. PROPRANOLOL HCL TABLETS 60MG [Suspect]
     Active Substance: PROPRANOLOL HYDROCHLORIDE
     Route: 048

REACTIONS (4)
  - Vertigo [Unknown]
  - Intentional underdose [Unknown]
  - Product substitution issue [None]
  - Energy increased [Unknown]

NARRATIVE: CASE EVENT DATE: 2015
